FAERS Safety Report 7996256-9 (Version None)
Quarter: 2011Q4

REPORT INFORMATION
  Report Type: 
  Country: None (occurrence: None)
  Receive Date: 20111220
  Receipt Date: 20111216
  Transmission Date: 20120403
  Serious: No
  Sender: FDA-Public Use
  Company Number: US-BAYER-2011-121962

PATIENT
  Age: 31 Year
  Sex: Male
  Weight: 67 kg

DRUGS (1)
  1. ALEVE (CAPLET) [Suspect]
     Dosage: UNK UNK, QD
     Dates: start: 20111216, end: 20111216

REACTIONS (1)
  - NO ADVERSE EVENT [None]
